FAERS Safety Report 7873261-4 (Version None)
Quarter: 2011Q4

REPORT INFORMATION
  Report Type: 
  Country: None (occurrence: None)
  Receive Date: 20111030
  Receipt Date: 20110502
  Transmission Date: 20120403
  Serious: No
  Sender: FDA-Public Use
  Company Number: US-AMGEN-USASP2011009935

PATIENT
  Age: 60 Year
  Sex: Female

DRUGS (1)
  1. ENBREL [Suspect]
     Indication: RHEUMATOID ARTHRITIS
     Dates: start: 20110218

REACTIONS (4)
  - GAIT DISTURBANCE [None]
  - INJECTION SITE ERYTHEMA [None]
  - THERAPEUTIC RESPONSE DECREASED [None]
  - INJECTION SITE REACTION [None]
